FAERS Safety Report 13654317 (Version 1)
Quarter: 2017Q2

REPORT INFORMATION
  Report Type: Report from Study
  Country: US (occurrence: US)
  Receive Date: 20170614
  Receipt Date: 20170614
  Transmission Date: 20170830
  Serious: Yes (Death, Hospitalization)
  Sender: FDA-Public Use
  Company Number: US-TORRENT-00002927

PATIENT
  Age: 23 Year
  Sex: Male

DRUGS (9)
  1. OMEPRAZOLE. [Suspect]
     Active Substance: OMEPRAZOLE
  2. GLIPIZIDE. [Suspect]
     Active Substance: GLIPIZIDE
  3. HYDROCHLOROTHIAZIDE. [Suspect]
     Active Substance: HYDROCHLOROTHIAZIDE
  4. PROPAFENONE. [Suspect]
     Active Substance: PROPAFENONE
  5. AMLODIPINE [Suspect]
     Active Substance: AMLODIPINE BESYLATE
  6. PARACETAMOL [Suspect]
     Active Substance: ACETAMINOPHEN
  7. ATENOLOL. [Suspect]
     Active Substance: ATENOLOL
  8. LISINOPRIL. [Suspect]
     Active Substance: LISINOPRIL
  9. METFORMIN [Suspect]
     Active Substance: METFORMIN HYDROCHLORIDE

REACTIONS (2)
  - Completed suicide [Fatal]
  - Toxicity to various agents [Fatal]
